FAERS Safety Report 9201743 (Version 6)
Quarter: 2014Q1

REPORT INFORMATION
  Report Type: Spontaneous
  Country: US (occurrence: US)
  Receive Date: 20130401
  Receipt Date: 20140224
  Transmission Date: 20141002
  Serious: Yes (Other)
  Sender: FDA-Public Use
  Company Number: US-PFIZER INC-2013101799

PATIENT
  Age: 64 Year
  Sex: Female

DRUGS (27)
  1. XELJANZ [Suspect]
     Indication: RHEUMATOID ARTHRITIS
     Dosage: 5 MG, 2X/DAY
     Route: 048
     Dates: start: 201301
  2. XELJANZ [Suspect]
     Dosage: 5 MG, 2X/DAY
     Route: 048
     Dates: start: 201305, end: 20130723
  3. XELJANZ [Suspect]
     Dosage: 50 MG, 2X/DAY
     Route: 048
     Dates: start: 201310
  4. ALIGN [Concomitant]
     Dosage: AS NEEDED
  5. CRANBERRY [Concomitant]
     Dosage: 300 MG, 3X/DAY
  6. DICYCLOMINE [Concomitant]
     Dosage: 10MG 3-4 TIMES PER DAY
  7. EFFEXOR [Concomitant]
     Dosage: 250 MG, 1X/DAY
  8. FOLIC ACID [Concomitant]
     Dosage: 5 MG, 1X/DAY
  9. GABAPENTIN [Concomitant]
     Dosage: UNK
  10. HYDROCHLOROTHIAZIDE [Concomitant]
     Dosage: 12.5 MG, 1X/DAY
  11. HYDROCODONE W/ACETAMINOPHEN [Concomitant]
     Dosage: UPTO 4 TIMES DAILY
  12. LEVOTHYROXINE [Concomitant]
     Dosage: 150 UG, 1X/DAY
     Route: 048
  13. LIPITOR [Concomitant]
     Dosage: 80 MG, 1X/DAY
  14. LISINOPRIL [Concomitant]
     Dosage: 10 MG, 1X/DAY
  15. LACTULOSE [Concomitant]
     Dosage: ONCE DAILY
  16. LEFLUNOMIDE [Concomitant]
     Dosage: UNK
  17. METFORMIN [Concomitant]
     Dosage: 250 MG, 2X/DAY
  18. METHOTREXATE [Concomitant]
     Dosage: 8 TABLETS WEEKLY
  19. OMEPRAZOLE [Concomitant]
     Dosage: 20 MG, 2X/DAY
  20. OXYCONTIN [Concomitant]
     Dosage: 2 DF, 2X/DAY
  21. PREMARIN [Concomitant]
     Dosage: UNK, 2-3 PER WEEK
  22. ROPINIROLE [Concomitant]
     Dosage: UNK
  23. SUCRALFATE [Concomitant]
     Dosage: UNK 3X/DAY WITH MEALS
  24. TRAZODONE [Concomitant]
     Dosage: 150 MG, QUAQUE HORA
  25. VITAMIN D3 [Concomitant]
     Dosage: 1000 IU, 1X/DAY
  26. VOLTAREN [Concomitant]
     Dosage: UNK, AS NEEDED
  27. VENLAFAXINE HYDROCHLORIDE [Concomitant]
     Dosage: 75 MG, 1X/DAY
     Route: 048

REACTIONS (8)
  - Urinary tract infection [Recovered/Resolved]
  - Arthropathy [Unknown]
  - Acne [Unknown]
  - Nausea [Unknown]
  - Alopecia [Recovered/Resolved]
  - Rash [Recovered/Resolved]
  - Abdominal pain upper [Unknown]
  - Nasopharyngitis [Unknown]
